FAERS Safety Report 11799104 (Version 1)
Quarter: 2015Q4

REPORT INFORMATION
  Report Type: Spontaneous
  Country: US (occurrence: US)
  Receive Date: 20151203
  Receipt Date: 20151203
  Transmission Date: 20160305
  Serious: Yes (Other)
  Sender: FDA-Public Use
  Company Number: US-SHIRE-US-002181

PATIENT
  Age: 58 Year
  Sex: Female
  Weight: 112 kg

DRUGS (9)
  1. CALCITRIOL. [Concomitant]
     Active Substance: CALCITRIOL
     Dosage: [2 - 4 X DAILY]
     Route: 058
     Dates: start: 2011, end: 201505
  2. CALCITRIOL. [Concomitant]
     Active Substance: CALCITRIOL
     Indication: HYPOPARATHYROIDISM
     Dosage: DF DAILY DOSING
     Route: 058
     Dates: start: 201507
  3. VITAMIN D3 [Concomitant]
     Active Substance: CHOLECALCIFEROL
     Indication: HYPOPARATHYROIDISM
     Dosage: DAILY
     Dates: start: 201506
  4. METFORMIN [Concomitant]
     Active Substance: METFORMIN HYDROCHLORIDE
     Indication: DIABETES MELLITUS
     Dosage: DAILY
     Dates: start: 2008
  5. CALCIUM [Concomitant]
     Active Substance: CALCIUM
     Indication: HYPOPARATHYROIDISM
     Dates: start: 2011
  6. CALCITRIOL. [Concomitant]
     Active Substance: CALCITRIOL
     Dosage: DF 3 TIMES DAILY DUE TO MISSED DOSES
     Route: 058
     Dates: start: 20150716, end: 201507
  7. CALCITRIOL. [Concomitant]
     Active Substance: CALCITRIOL
     Route: 058
     Dates: start: 201505, end: 2015
  8. NATPARA (PARATHYROID HORMONE) [Suspect]
     Active Substance: PARATHYROID HORMONE
     Indication: HYPOPARATHYROIDISM
     Route: 058
     Dates: start: 20150505, end: 20150703
  9. INVOKONA [Concomitant]
     Indication: DIABETES MELLITUS
     Dosage: DAILY
     Dates: start: 201506

REACTIONS (3)
  - Drug dose omission [Recovered/Resolved]
  - Incorrect product storage [Not Recovered/Not Resolved]
  - Blood calcium increased [Unknown]

NARRATIVE: CASE EVENT DATE: 2015
